FAERS Safety Report 10735426 (Version 2)
Quarter: 2015Q1

REPORT INFORMATION
  Report Type: Report from Study
  Country: NL (occurrence: NL)
  Receive Date: 20150126
  Receipt Date: 20150129
  Transmission Date: 20150721
  Serious: Yes (Death, Hospitalization)
  Sender: FDA-Public Use
  Company Number: NL-AMGEN-NLDSL2015006050

PATIENT
  Age: 75 Year
  Sex: Male

DRUGS (1)
  1. ARANESP [Suspect]
     Active Substance: DARBEPOETIN ALFA
     Indication: ANAEMIA
     Dosage: 1 ML (500MCG/ML), Q3WK
     Route: 058
     Dates: start: 20141118, end: 20141222

REACTIONS (1)
  - Terminal state [Fatal]
